FAERS Safety Report 21308955 (Version 1)
Quarter: 2022Q3

REPORT INFORMATION
  Report Type: Spontaneous
  Country: DE (occurrence: DE)
  Receive Date: 20220908
  Receipt Date: 20220908
  Transmission Date: 20221027
  Serious: Yes (Other)
  Sender: FDA-Public Use
  Company Number: DE-Merck Healthcare KGaA-9348444

PATIENT
  Age: 70 Year
  Sex: Female

DRUGS (2)
  1. CETUXIMAB [Suspect]
     Active Substance: CETUXIMAB
     Indication: Colorectal cancer metastatic
     Dosage: UNK, UNKNOWN
     Route: 065
  2. ENCORAFENIB [Concomitant]
     Active Substance: ENCORAFENIB
     Indication: Colorectal cancer metastatic
     Dosage: UNK, UNKNOWN

REACTIONS (2)
  - Infusion related reaction [Unknown]
  - Off label use [Unknown]
